FAERS Safety Report 16087877 (Version 1)
Quarter: 2019Q1

REPORT INFORMATION
  Report Type: Spontaneous
  Country: FR (occurrence: FR)
  Receive Date: 20190319
  Receipt Date: 20190319
  Transmission Date: 20190418
  Serious: Yes (Hospitalization, Other)
  Sender: FDA-Public Use
  Company Number: FR-AUROBINDO-AUR-APL-2019-014590

PATIENT

DRUGS (9)
  1. NUROFEN [Suspect]
     Active Substance: IBUPROFEN
     Indication: VERTIGO
  2. PARACETAMOL [Suspect]
     Active Substance: ACETAMINOPHEN
     Indication: ABDOMINAL PAIN
     Dosage: 1 GRAM, DAILY
     Route: 048
     Dates: start: 20150526
  3. OFLOCET [Concomitant]
     Active Substance: OFLOXACIN
     Indication: PRODUCT USED FOR UNKNOWN INDICATION
     Dosage: 200 MILLIGRAM, DAILY
     Route: 065
     Dates: start: 20150529
  4. PARACETAMOL [Suspect]
     Active Substance: ACETAMINOPHEN
     Indication: HEADACHE
     Dosage: 1 GRAM, DAILY
     Route: 048
     Dates: start: 20150526, end: 20150530
  5. NUROFEN [Suspect]
     Active Substance: IBUPROFEN
     Indication: PYREXIA
  6. NUROFEN [Suspect]
     Active Substance: IBUPROFEN
     Indication: PYREXIA
  7. NUROFEN [Suspect]
     Active Substance: IBUPROFEN
     Indication: ABDOMINAL PAIN
     Dosage: 400 MILLIGRAM, DAILY
     Route: 048
     Dates: start: 20150528
  8. NUROFEN [Suspect]
     Active Substance: IBUPROFEN
     Indication: HEADACHE
     Dosage: 400 MILLIGRAM, DAILY
     Route: 048
     Dates: start: 20150528, end: 20150531
  9. SPIFEN [Concomitant]
     Active Substance: IBUPROFEN
     Indication: PRODUCT USED FOR UNKNOWN INDICATION
     Dosage: UNK
     Route: 065
     Dates: start: 20150529

REACTIONS (5)
  - Cholestasis [Recovering/Resolving]
  - Vomiting [Unknown]
  - Jaundice [Unknown]
  - Hepatitis [Recovering/Resolving]
  - Rash macular [Unknown]

NARRATIVE: CASE EVENT DATE: 20150529
